FAERS Safety Report 6887531-X (Version None)
Quarter: 2010Q3

REPORT INFORMATION
  Report Type: 
  Country: None (occurrence: None)
  Receive Date: 20100730
  Receipt Date: 20100630
  Transmission Date: 20110219
  Serious: Yes (Other)
  Sender: FDA-Public Use
  Company Number: CO-PFIZER INC-2010078974

PATIENT
  Age: 79 Year
  Sex: Female

DRUGS (2)
  1. DETRUSITOL [Suspect]
     Indication: HYPERTONIC BLADDER
     Dosage: 2 MG, 1X/DAY
     Route: 048
     Dates: start: 20100128, end: 20100611
  2. CUMADIN [Concomitant]
     Indication: VASCULAR INSUFFICIENCY
     Dosage: 5 MG, 1X/DAY

REACTIONS (1)
  - CYSTITIS [None]
